FAERS Safety Report 14256842 (Version 2)
Quarter: 2018Q1

REPORT INFORMATION
  Report Type: Spontaneous
  Country: US (occurrence: US)
  Receive Date: 20171206
  Receipt Date: 20180122
  Transmission Date: 20180508
  Serious: No
  Sender: FDA-Public Use
  Company Number: US-009507513-1711USA008125

PATIENT
  Age: 36 Year
  Sex: Female
  Weight: 78.01 kg

DRUGS (4)
  1. PUREGON PEN [Suspect]
     Active Substance: FOLLITROPIN
     Indication: IN VITRO FERTILISATION
     Dosage: UNK
     Route: 058
     Dates: start: 20171006, end: 20171013
  2. FOLLISTIM [Suspect]
     Active Substance: FOLLITROPIN
     Indication: IN VITRO FERTILISATION
     Dosage: 300 IU, DAILY FOR ONE WEEK
     Route: 058
     Dates: start: 20171006, end: 20171013
  3. DOXYCYCLINE. [Concomitant]
     Active Substance: DOXYCYCLINE
  4. CLOMID [Concomitant]
     Active Substance: CLOMIPHENE CITRATE
     Indication: IN VITRO FERTILISATION
     Dosage: 100 MG, QD
     Route: 048
     Dates: start: 20171006, end: 20171014

REACTIONS (4)
  - Device malfunction [Unknown]
  - No adverse event [Unknown]
  - Product use issue [Unknown]
  - Therapy non-responder [Unknown]

NARRATIVE: CASE EVENT DATE: 201710
